FAERS Safety Report 10038650 (Version 2)
Quarter: 2014Q1

REPORT INFORMATION
  Report Type: Spontaneous
  Country: US (occurrence: US)
  Receive Date: 20140326
  Receipt Date: 20140326
  Transmission Date: 20141002
  Serious: Yes (Other)
  Sender: FDA-Public Use
  Company Number: US-ACTELION-A-NJ2014-95416

PATIENT
  Age: 66 Year
  Sex: Female

DRUGS (9)
  1. OPSUMIT [Suspect]
     Indication: RAYNAUD^S PHENOMENON
     Dosage: 10 MG, QD
     Route: 048
     Dates: start: 20131203, end: 20140219
  2. LIPITOR [Concomitant]
     Dosage: 40 MG QD
  3. ENBREL [Concomitant]
  4. CELEBREX [Concomitant]
  5. FOLIC ACID [Concomitant]
  6. LIDOCAINE [Concomitant]
  7. OMEPRAZOLE [Concomitant]
     Dosage: 40 MG QD
  8. OXYCODONE [Concomitant]
     Dosage: 5 MG PRN
  9. RESTASIS [Concomitant]

REACTIONS (7)
  - Mitral valve incompetence [Not Recovered/Not Resolved]
  - Condition aggravated [Not Recovered/Not Resolved]
  - Dyspnoea [Not Recovered/Not Resolved]
  - Pulmonary arterial pressure increased [Not Recovered/Not Resolved]
  - Anaemia [Not Recovered/Not Resolved]
  - Dyspnoea exertional [Not Recovered/Not Resolved]
  - Pleuritic pain [Not Recovered/Not Resolved]
